FAERS Safety Report 18986644 (Version 1)
Quarter: 2021Q1

REPORT INFORMATION
  Report Type: Spontaneous
  Country: DE (occurrence: DE)
  Receive Date: 20210309
  Receipt Date: 20210309
  Transmission Date: 20210420
  Serious: Yes (Hospitalization, Other)
  Sender: FDA-Public Use
  Company Number: DE-PFIZER INC-2021220534

PATIENT
  Age: 85 Year
  Sex: Female
  Weight: 60 kg

DRUGS (8)
  1. LEFLUNOMID [Suspect]
     Active Substance: LEFLUNOMIDE
     Dosage: 15 MG, 1X/DAY
     Route: 048
  2. VIGANTOL [COLECALCIFEROL] [Concomitant]
     Active Substance: CHOLECALCIFEROL
     Dosage: UNK, 2X/DAY
     Route: 048
  3. FOLIC ACID. [Concomitant]
     Active Substance: FOLIC ACID
     Dosage: 5 MG PER SCHEME
     Route: 048
  4. PREDNISOLONE. [Suspect]
     Active Substance: PREDNISOLONE
     Dosage: 5 MG, 1X/DAY
     Route: 048
  5. RISEDRONIC ACID [Concomitant]
     Active Substance: RISEDRONIC ACID
     Dosage: 35 MG
     Route: 048
  6. METHOTREXATE SODIUM. [Suspect]
     Active Substance: METHOTREXATE SODIUM
     Dosage: 15 MG, WEEKLY
     Route: 048
  7. PANTOPRAZOLE [Concomitant]
     Active Substance: PANTOPRAZOLE
     Dosage: 40 MG, DAILY
     Route: 048
  8. KALIUM VERLA [Concomitant]
     Active Substance: POTASSIUM CITRATE
     Dosage: 260 MG, 2X/DAY
     Route: 048

REACTIONS (8)
  - Nausea [Unknown]
  - Leukopenia [Unknown]
  - Inflammation [Unknown]
  - Vomiting [Unknown]
  - Product monitoring error [Unknown]
  - Oral pain [Unknown]
  - Localised infection [Unknown]
  - Dysphagia [Unknown]

NARRATIVE: CASE EVENT DATE: 20190725
